FAERS Safety Report 8958653 (Version 1)
Quarter: 2012Q4

REPORT INFORMATION
  Report Type: Spontaneous
  Country: US (occurrence: None)
  Receive Date: 20121206
  Receipt Date: 20121206
  Transmission Date: 20130627
  Serious: Yes (Hospitalization, Disabling, Other)
  Sender: FDA-Public Use
  Company Number: None

PATIENT
  Age: 41 Year
  Sex: Female
  Weight: 64.41 kg

DRUGS (2)
  1. CLOMIFENE CITRATE [Suspect]
     Indication: FERTILITY INVESTIGATIONS
     Dosage: 100mg Once daily po
     Route: 048
     Dates: start: 20121109, end: 20121113
  2. CLOMID [Concomitant]

REACTIONS (7)
  - Vaginal haemorrhage [None]
  - Vaginal discharge [None]
  - Abdominal pain [None]
  - Nausea [None]
  - Vomiting [None]
  - Abdominal distension [None]
  - Ovarian enlargement [None]
